FAERS Safety Report 6691146-6 (Version None)
Quarter: 2010Q2

REPORT INFORMATION
  Report Type: 
  Country: None (occurrence: None)
  Receive Date: 20100422
  Receipt Date: 20100414
  Transmission Date: 20101027
  Serious: No
  Sender: FDA-Public Use
  Company Number: US-BIOGENIDEC-2010BI012920

PATIENT
  Sex: Female

DRUGS (2)
  1. TYSABRI [Suspect]
     Indication: MULTIPLE SCLEROSIS
     Route: 042
     Dates: start: 20060915, end: 20070426
  2. TYSABRI [Suspect]
     Route: 042
     Dates: start: 20070615, end: 20100204

REACTIONS (1)
  - VISUAL IMPAIRMENT [None]
